FAERS Safety Report 4750353-X (Version None)
Quarter: 2005Q3

REPORT INFORMATION
  Report Type: 
  Country: None (occurrence: None)
  Receive Date: 20050823
  Receipt Date: 20050815
  Transmission Date: 20060218
  Serious: Yes (Other)
  Sender: FDA-Public Use
  Company Number: PHEH2005US09081

PATIENT
  Age: 26 Year
  Sex: Male
  Weight: 66 kg

DRUGS (1)
  1. LAMISIL [Suspect]
     Route: 048
     Dates: start: 20050727, end: 20050805

REACTIONS (3)
  - BLEPHAROSPASM [None]
  - FACIAL PALSY [None]
  - HYPOAESTHESIA [None]
